FAERS Safety Report 13946187 (Version 5)
Quarter: 2019Q1

REPORT INFORMATION
  Report Type: Spontaneous
  Country: US (occurrence: US)
  Receive Date: 20170907
  Receipt Date: 20190227
  Transmission Date: 20190417
  Serious: Yes (Hospitalization, Other)
  Sender: FDA-Public Use
  Company Number: US-DSJP-DSU-2017-135197

PATIENT

DRUGS (1)
  1. AZOR [Suspect]
     Active Substance: AMLODIPINE BESYLATE\OLMESARTAN MEDOXOMIL
     Indication: HYPERTENSION
     Dosage: 10-40 MG , QD
     Route: 048
     Dates: end: 20160901

REACTIONS (13)
  - Oesophageal ulcer [Not Recovered/Not Resolved]
  - Hypotension [Unknown]
  - Acute kidney injury [Not Recovered/Not Resolved]
  - Large intestine polyp [Unknown]
  - Gastrointestinal haemorrhage [Unknown]
  - Haemorrhoids [Not Recovered/Not Resolved]
  - Clostridium difficile colitis [Recovering/Resolving]
  - Hiatus hernia [Unknown]
  - Diverticulum [Unknown]
  - Diverticulitis [Not Recovered/Not Resolved]
  - Sprue-like enteropathy [Recovering/Resolving]
  - Colitis ulcerative [Not Recovered/Not Resolved]
  - Ascites [Unknown]

NARRATIVE: CASE EVENT DATE: 20100616
